FAERS Safety Report 22183563 (Version 2)
Quarter: 2024Q3

REPORT INFORMATION
  Report Type: Spontaneous
  Country: CZ (occurrence: CZ)
  Receive Date: 20230406
  Receipt Date: 20240703
  Transmission Date: 20241016
  Serious: Yes (Other)
  Sender: MYLAN
  Company Number: CZ-ABBVIE-4699095

PATIENT
  Age: 65 Year
  Sex: Male

DRUGS (6)
  1. AZACITIDINE [Suspect]
     Active Substance: AZACITIDINE
     Indication: Acute myeloid leukaemia
     Dosage: FIRST CYCLES
     Route: 065
     Dates: start: 20220608, end: 2022
  2. AZACITIDINE [Suspect]
     Active Substance: AZACITIDINE
     Dosage: SECOND CYCLE
     Route: 065
     Dates: start: 20220721, end: 20220805
  3. AZACITIDINE [Suspect]
     Active Substance: AZACITIDINE
     Dosage: UNK
     Route: 065
     Dates: start: 20220819
  4. VENETOCLAX [Suspect]
     Active Substance: VENETOCLAX
     Indication: Acute myeloid leukaemia
     Dosage: FIRST CYCLE
     Route: 048
     Dates: start: 20220608, end: 2022
  5. VENETOCLAX [Suspect]
     Active Substance: VENETOCLAX
     Dosage: SECOND CYCLE
     Route: 048
     Dates: start: 20220721, end: 20220805
  6. VENETOCLAX [Suspect]
     Active Substance: VENETOCLAX
     Dosage: THIRD CYCLE
     Route: 048
     Dates: start: 20220819

REACTIONS (3)
  - Acute graft versus host disease [Unknown]
  - Neutropenia [Unknown]
  - Colitis [Unknown]

NARRATIVE: CASE EVENT DATE: 20230101
